FAERS Safety Report 9188155 (Version 1)
Quarter: 2013Q1

REPORT INFORMATION
  Report Type: Spontaneous
  Country: DK (occurrence: CH)
  Receive Date: 20130325
  Receipt Date: 20130325
  Transmission Date: 20140127
  Serious: Yes (Hospitalization)
  Sender: FDA-Public Use
  Company Number: CH-FRI-1000043627

PATIENT
  Sex: Female

DRUGS (10)
  1. ESCITALOPRAM [Suspect]
     Indication: DEPRESSION
     Dosage: 20 MG
     Route: 048
     Dates: start: 201202
  2. INDERAL LA [Suspect]
     Indication: ESSENTIAL HYPERTENSION
     Dosage: 800 MG
     Route: 048
     Dates: start: 20130124, end: 20130124
  3. ZOLPIDEM [Suspect]
     Indication: INSOMNIA
     Dosage: 40 MG
     Route: 048
     Dates: start: 20130124, end: 20130124
  4. CYMBALTA [Suspect]
     Indication: DEPRESSION
     Dosage: BETWEEN 150 MG TO 300 MG
     Route: 048
     Dates: start: 20130124, end: 20130124
  5. LAXOBERON [Concomitant]
  6. ISOPTIN [Concomitant]
     Indication: ESSENTIAL HYPERTENSION
     Dosage: 240 MG
     Route: 048
  7. DEMETRIN [Concomitant]
     Dosage: 10 MG
     Route: 048
  8. CALCIMAGON D3 [Concomitant]
     Dosage: 1 DF
     Route: 048
  9. TRITTICO [Concomitant]
     Dosage: 50 MG
     Route: 048
  10. DUPHALAC [Concomitant]

REACTIONS (6)
  - Suicide attempt [Recovered/Resolved]
  - Electrocardiogram QT interval abnormal [Unknown]
  - Bradycardia [Unknown]
  - Hypotension [Unknown]
  - Apathy [Unknown]
  - Overdose [Unknown]
